FAERS Safety Report 18007101 (Version 3)
Quarter: 2020Q3

REPORT INFORMATION
  Report Type: Spontaneous
  Country: CH (occurrence: CH)
  Receive Date: 20200710
  Receipt Date: 20200922
  Transmission Date: 20201103
  Serious: Yes (Death, Other)
  Sender: FDA-Public Use
  Company Number: CH-ASTRAZENECA-2020SE85858

PATIENT
  Sex: Male

DRUGS (2)
  1. LYNPARZA [Suspect]
     Active Substance: OLAPARIB
     Indication: PROSTATE CANCER
     Route: 048
     Dates: start: 20200402, end: 20200610
  2. LHRH ANALOGUES [Concomitant]
     Dosage: UNKNOWN
     Route: 065

REACTIONS (13)
  - Pelvic abscess [Unknown]
  - Renal atrophy [Unknown]
  - Intestinal fistula [Unknown]
  - Pleural effusion [Unknown]
  - Hydronephrosis [Unknown]
  - Ascites [Unknown]
  - Death [Fatal]
  - Metastases to lymph nodes [Unknown]
  - Pelvic inflammatory disease [Unknown]
  - Off label use [Unknown]
  - Intestinal perforation [Unknown]
  - Metastases to liver [Unknown]
  - Metastases to bone [Unknown]
